FAERS Safety Report 9731729 (Version 1)
Quarter: 2013Q4

REPORT INFORMATION
  Report Type: Spontaneous
  Country: US (occurrence: None)
  Receive Date: 20131203
  Receipt Date: 20131203
  Transmission Date: 20140711
  Serious: Yes (Death)
  Sender: FDA-Public Use
  Company Number: US-ALKEM-000339

PATIENT
  Age: 49 Year
  Sex: Male

DRUGS (5)
  1. GABAPENTIN (GABAPENTIN) [Suspect]
     Dosage: ORAL
     Route: 048
  2. SALICYLATES [Suspect]
     Dosage: ORAL
     Route: 048
  3. LAMOTRIGINE (LAMOTRIGINE) [Suspect]
     Dosage: ORAL
     Route: 048
  4. ZOLPIDEM (ZOLPIDEM) [Suspect]
     Dosage: ORAL
     Route: 048
  5. ALPRAZOLAM(ALPRAZOLAM) (ALPRAZOLAM) [Suspect]
     Dosage: ORAL
     Route: 048

REACTIONS (2)
  - Completed suicide [None]
  - Wrong drug administered [None]
